FAERS Safety Report 7704729-9 (Version None)
Quarter: 2011Q3

REPORT INFORMATION
  Report Type: 
  Country: None (occurrence: None)
  Receive Date: 20110823
  Receipt Date: 20110815
  Transmission Date: 20111222
  Serious: Yes (Other)
  Sender: FDA-Public Use
  Company Number: PHHY2011US74550

PATIENT
  Age: 12 Year
  Sex: Male

DRUGS (6)
  1. LEVETIRACETAM [Suspect]
     Indication: COMPLEX PARTIAL SEIZURES
     Dosage: 750 MG, BID
  2. LEVETIRACETAM [Suspect]
     Dosage: 1700 MG, UNK
  3. VALPROIC ACID [Concomitant]
  4. ZONISAMIDE [Concomitant]
     Dosage: 50 MG, BID
  5. LEVETIRACETAM [Suspect]
     Dosage: 1400 MG, UNK
  6. CLONAZEPAM [Concomitant]

REACTIONS (11)
  - GRAND MAL CONVULSION [None]
  - MYOCLONUS [None]
  - COMPLEX PARTIAL SEIZURES [None]
  - BALANCE DISORDER [None]
  - PYREXIA [None]
  - DRUG INEFFECTIVE [None]
  - HYPOTONIA [None]
  - FEELING JITTERY [None]
  - HEAD DISCOMFORT [None]
  - MUSCLE TWITCHING [None]
  - FALL [None]
